FAERS Safety Report 8408172-9 (Version None)
Quarter: 2012Q2

REPORT INFORMATION
  Report Type: 
  Country: None (occurrence: None)
  Receive Date: 20120604
  Receipt Date: 20120521
  Transmission Date: 20120825
  Serious: Yes (Other)
  Sender: FDA-Public Use
  Company Number: CHPA2012US011401

PATIENT
  Sex: Female

DRUGS (3)
  1. BENEFIBER [Concomitant]
     Indication: NUTRITIONAL SUPPORT
     Dosage: 3 TSP, QD
     Route: 048
     Dates: start: 20120512, end: 20120517
  2. BENEFIBER W/ WHEAT DEXTRIN [Suspect]
     Indication: NUTRITIONAL SUPPORT
     Dosage: 3 TSP, BID
     Route: 048
     Dates: end: 20120511
  3. BENEFIBER W/ WHEAT DEXTRIN [Suspect]
     Dosage: 3 TSP, QD
     Route: 048
     Dates: start: 20120517

REACTIONS (5)
  - INAPPROPRIATE SCHEDULE OF DRUG ADMINISTRATION [None]
  - INCORRECT DOSE ADMINISTERED [None]
  - UNDERDOSE [None]
  - BLOOD CHOLESTEROL INCREASED [None]
  - HEART RATE INCREASED [None]
